FAERS Safety Report 6993461-5 (Version None)
Quarter: 2010Q3

REPORT INFORMATION
  Report Type: 
  Country: None (occurrence: None)
  Receive Date: 20100917
  Receipt Date: 20100623
  Transmission Date: 20110219
  Serious: No
  Sender: FDA-Public Use
  Company Number: US-ASTRAZENECA-2010SE29442

PATIENT
  Sex: Male
  Weight: 113.4 kg

DRUGS (4)
  1. SEROQUEL XR [Suspect]
     Indication: PSYCHOTIC BEHAVIOUR
     Route: 048
     Dates: start: 20100101
  2. VALIUM [Concomitant]
     Route: 065
  3. TEGRETOL [Concomitant]
     Route: 065
  4. HYDROCHLOROTHIAZIDE [Concomitant]
     Indication: HYPERTENSION
     Route: 065

REACTIONS (2)
  - MALAISE [None]
  - SOMNOLENCE [None]
